FAERS Safety Report 9463510 (Version 1)
Quarter: 2013Q3

REPORT INFORMATION
  Report Type: Spontaneous
  Country: FI (occurrence: FI)
  Receive Date: 20130819
  Receipt Date: 20130819
  Transmission Date: 20140515
  Serious: Yes (Other)
  Sender: FDA-Public Use
  Company Number: FI-ROCHE-1262910

PATIENT
  Age: 39 Year
  Sex: Female

DRUGS (5)
  1. HERCEPTIN [Suspect]
     Indication: BREAST CANCER
     Route: 065
     Dates: start: 201307
  2. PERJETA [Suspect]
     Indication: BREAST CANCER
     Route: 065
     Dates: start: 201307
  3. DOCETAXEL [Concomitant]
     Route: 065
     Dates: start: 201307
  4. SOLU-CORTEF [Concomitant]
  5. HISTEC [Concomitant]

REACTIONS (1)
  - Urticaria [Recovered/Resolved]
